FAERS Safety Report 20756000 (Version 1)
Quarter: 2022Q2

REPORT INFORMATION
  Report Type: Report from Study
  Country: CO (occurrence: CO)
  Receive Date: 20220427
  Receipt Date: 20220427
  Transmission Date: 20220721
  Serious: Yes (Other)
  Sender: FDA-Public Use
  Company Number: CO-ABBVIE-22K-036-4371844-00

PATIENT
  Age: 53 Year
  Sex: Female
  Weight: 74 kg

DRUGS (3)
  1. HUMIRA [Suspect]
     Active Substance: ADALIMUMAB
     Indication: Colitis ulcerative
     Route: 058
     Dates: start: 20200211
  2. MESALAMINE [Concomitant]
     Active Substance: MESALAMINE
     Indication: Pain
  3. ACETAMINOPHEN [Concomitant]
     Active Substance: ACETAMINOPHEN
     Indication: Pain

REACTIONS (6)
  - Haematochezia [Recovered/Resolved]
  - Headache [Recovering/Resolving]
  - Menopausal symptoms [Recovering/Resolving]
  - Insomnia [Recovered/Resolved]
  - Abdominal pain upper [Recovered/Resolved]
  - Breast pain [Recovering/Resolving]

NARRATIVE: CASE EVENT DATE: 20220421
